FAERS Safety Report 6489095-1 (Version None)
Quarter: 2009Q4

REPORT INFORMATION
  Report Type: 
  Country: None (occurrence: None)
  Receive Date: 20091210
  Receipt Date: 20091130
  Transmission Date: 20100525
  Serious: Yes (Other)
  Sender: FDA-Public Use
  Company Number: US-BRACCO-BDI-003056

PATIENT
  Age: 26 Year
  Sex: Female

DRUGS (4)
  1. IRON [Concomitant]
     Route: 065
  2. VITAMINS [Concomitant]
     Route: 065
  3. ISOVUE-128 [Suspect]
     Indication: ACCIDENTAL EXPOSURE
     Route: 061
     Dates: start: 20010417, end: 20010417
  4. ISOVUE-128 [Suspect]
     Route: 061
     Dates: start: 20010417, end: 20010417

REACTIONS (6)
  - ACCIDENTAL EXPOSURE [None]
  - ANAPHYLACTOID REACTION [None]
  - BLOOD PRESSURE DECREASED [None]
  - PRURITUS [None]
  - THROAT TIGHTNESS [None]
  - URTICARIA [None]
